FAERS Safety Report 6757153-X (Version None)
Quarter: 2010Q2

REPORT INFORMATION
  Report Type: 
  Country: None (occurrence: None)
  Receive Date: 20100607
  Receipt Date: 20100524
  Transmission Date: 20101027
  Serious: Yes (Other)
  Sender: FDA-Public Use
  Company Number: US-RB-010673-10

PATIENT
  Age: 18 Year
  Sex: Male

DRUGS (2)
  1. DELSYM [Suspect]
     Dosage: DRANK PRODUCT RECREATIONALLY
     Route: 048
     Dates: start: 20100101
  2. OTC ANTIHISTAMINE LIKE CORICIDIN [Concomitant]

REACTIONS (2)
  - DRUG ABUSE [None]
  - NO ADVERSE EVENT [None]
